FAERS Safety Report 4808559-7 (Version None)
Quarter: 2005Q4

REPORT INFORMATION
  Report Type: 
  Country: None (occurrence: None)
  Receive Date: 20051025
  Receipt Date: 20051020
  Transmission Date: 20060501
  Serious: Yes (Hospitalization)
  Sender: FDA-Public Use
  Company Number: CA-GLAXOSMITHKLINE-A0579025A

PATIENT
  Age: 55 Year
  Sex: Male

DRUGS (4)
  1. WELLBUTRIN SR [Suspect]
     Indication: DEPRESSION
     Dosage: 300MG PER DAY
     Route: 048
  2. ROSUVASTATIN [Concomitant]
     Route: 048
  3. ROSIGLITAZONE [Concomitant]
     Route: 048
  4. VALSARTAN [Concomitant]
     Route: 048

REACTIONS (1)
  - PANCREATITIS [None]
